FAERS Safety Report 6923124-3 (Version None)
Quarter: 2010Q3

REPORT INFORMATION
  Report Type: 
  Country: None (occurrence: None)
  Receive Date: 20100811
  Receipt Date: 20100723
  Transmission Date: 20110219
  Serious: Yes (Hospitalization, Other)
  Sender: FDA-Public Use
  Company Number: 2010AP001478

PATIENT
  Age: 4 Year
  Sex: Male

DRUGS (10)
  1. CYCLOSPORINE [Suspect]
     Indication: PROPHYLAXIS AGAINST GRAFT VERSUS HOST DISEASE
  2. PHENYTOIN [Suspect]
     Indication: PROPHYLAXIS
  3. BUSULFAN [Concomitant]
  4. ANTITHYMOCYTE [Concomitant]
  5. IMMUNE GLOBULIN NOS [Concomitant]
  6. CYCLOPHOSPHAMIDE [Concomitant]
  7. ALEMTUZUMAB [Concomitant]
  8. FLUDARABINE [Concomitant]
  9. MELPHALAN [Concomitant]
  10. PREDNISONE [Concomitant]

REACTIONS (5)
  - ACUTE CHEST SYNDROME [None]
  - ATAXIA [None]
  - CONVULSION [None]
  - DRUG TOXICITY [None]
  - PNEUMONIA [None]
